FAERS Safety Report 9229568 (Version 3)
Quarter: 2014Q1

REPORT INFORMATION
  Report Type: Spontaneous
  Country: US (occurrence: US)
  Receive Date: 20130414
  Receipt Date: 20140321
  Transmission Date: 20141002
  Serious: Yes (Life-Threatening, Hospitalization)
  Sender: FDA-Public Use
  Company Number: US-B.I. PHARMACEUTICALS,INC./RIDGEFIELD-2013-BI-09702BP

PATIENT
  Age: 64 Year
  Sex: Male
  Weight: 81.65 kg

DRUGS (8)
  1. PRADAXA [Suspect]
     Indication: CEREBROVASCULAR ACCIDENT PROPHYLAXIS
     Dosage: 300 MG
     Route: 065
     Dates: start: 20110720, end: 20110902
  2. PRADAXA [Suspect]
     Indication: ATRIAL FIBRILLATION
  3. COREG [Concomitant]
     Dosage: 6.25 MG
     Route: 065
  4. HYDROCODONE [Concomitant]
     Route: 065
  5. PACERONE [Concomitant]
     Indication: ATRIAL FIBRILLATION
     Dosage: 400 MG
     Route: 065
  6. LASIX [Concomitant]
     Dosage: 40 MG
     Route: 065
  7. SIMVASTATIN [Concomitant]
     Dosage: 20 MG
     Route: 065
  8. POTASSIUM [Concomitant]
     Dosage: 20 MEQ
     Route: 065

REACTIONS (2)
  - Gastrointestinal haemorrhage [Recovered/Resolved]
  - Haemorrhagic anaemia [Unknown]
